FAERS Safety Report 9352812 (Version 6)
Quarter: 2014Q2

REPORT INFORMATION
  Report Type: Report from Study
  Country: US (occurrence: US)
  Receive Date: 20130618
  Receipt Date: 20140610
  Transmission Date: 20141212
  Serious: Yes (Disabling)
  Sender: FDA-Public Use
  Company Number: US-ROCHE-1235033

PATIENT
  Age: 66 Year
  Sex: Female
  Weight: 66.47 kg

DRUGS (9)
  1. TRASTUZUMAB [Suspect]
     Indication: HER-2 POSITIVE BREAST CANCER
     Dosage: LOADING DOSE CYCLE 1 ONLY (AS PER PROTOCOL)
     Route: 042
     Dates: start: 20130322, end: 20130322
  2. TRASTUZUMAB [Suspect]
     Dosage: MAINTENANCE DOSE (AS PER PROTOCOL)?DATE OF LAST DOSE PRIOR TO SAE: 23/MAY/2013
     Route: 042
     Dates: start: 20130412
  3. PACLITAXEL [Suspect]
     Indication: HER-2 POSITIVE BREAST CANCER
     Dosage: DATE OF LAST DOSE PRIOR TO SAE: 31/MAY/2013?DRUG PERMANENTLY DISCONTINUED
     Route: 042
     Dates: start: 20130322, end: 20130607
  4. JANUMET XR [Concomitant]
     Dosage: 100MG/1000MG
     Route: 065
     Dates: start: 20121015
  5. MAGNESIUM OXIDE [Concomitant]
     Route: 065
     Dates: start: 20130117
  6. POTASSIUM CHLORIDE [Concomitant]
     Route: 065
     Dates: start: 20130523
  7. TRIAMCINOLONE ACETONIDE [Concomitant]
     Route: 065
     Dates: start: 20130528
  8. PERTUZUMAB [Suspect]
     Indication: HER-2 POSITIVE BREAST CANCER
     Dosage: LOADING DOSE CYCLE 1 ONLY (AS PER PROTOCOL)
     Route: 042
     Dates: start: 20130322, end: 20130322
  9. PERTUZUMAB [Suspect]
     Dosage: MAINTENANCE DOSE (AS PER PROTOCOL)?LAST DOSE PRIOR TO SAE: 23/MAY/2013?PERMANENTLY DISCONTINUED
     Route: 042
     Dates: start: 20130412, end: 20131002

REACTIONS (1)
  - Ataxia [Recovered/Resolved]
